FAERS Safety Report 8589663-7 (Version None)
Quarter: 2012Q2

REPORT INFORMATION
  Report Type: 
  Country: None (occurrence: None)
  Receive Date: 20120423
  Receipt Date: 20100909
  Transmission Date: 20120825
  Serious: Yes (Other)
  Sender: FDA-Public Use
  Company Number: PHHY2010US60445

PATIENT
  Sex: Female

DRUGS (2)
  1. ARIMIDEX [Suspect]
  2. FEMARA [Suspect]
     Dosage: 2.5 MG,

REACTIONS (6)
  - URINARY TRACT INFECTION [None]
  - ARTHRALGIA [None]
  - MYALGIA [None]
  - HOT FLUSH [None]
  - DRY SKIN [None]
  - MUSCLE SPASMS [None]
